FAERS Safety Report 16321350 (Version 4)
Quarter: 2019Q4

REPORT INFORMATION
  Report Type: Spontaneous
  Country: US (occurrence: US)
  Receive Date: 20190516
  Receipt Date: 20191107
  Transmission Date: 20200122
  Serious: Yes (Other)
  Sender: FDA-Public Use
  Company Number: US-PFIZER INC-2019207926

PATIENT
  Age: 69 Year

DRUGS (10)
  1. VIAGRA [Suspect]
     Active Substance: SILDENAFIL CITRATE
     Dosage: 100-50 MG 2 TO 3 X WEEK
     Dates: start: 2003, end: 2014
  2. HYDROCHLOROTHIAZIDE. [Concomitant]
     Active Substance: HYDROCHLOROTHIAZIDE
     Indication: BLOOD PRESSURE ABNORMAL
     Dosage: UNK
  3. CIALIS [Suspect]
     Active Substance: TADALAFIL
     Indication: ERECTILE DYSFUNCTION
     Dosage: UNK
     Route: 048
     Dates: start: 2010, end: 2017
  4. AGGRENOX [Concomitant]
     Active Substance: ASPIRIN\DIPYRIDAMOLE
     Indication: CEREBROVASCULAR ACCIDENT
     Dosage: UNK
  5. CIALIS [Suspect]
     Active Substance: TADALAFIL
     Dosage: UNK
     Dates: start: 2009, end: 2019
  6. CIALIS [Suspect]
     Active Substance: TADALAFIL
     Dosage: UNK
     Dates: start: 2015, end: 2016
  7. TAMSULOSIN [Concomitant]
     Active Substance: TAMSULOSIN
     Indication: URINARY TRACT DISORDER
     Dosage: UNK
  8. VIAGRA [Suspect]
     Active Substance: SILDENAFIL CITRATE
     Indication: ERECTILE DYSFUNCTION
     Dosage: UNK
     Route: 048
     Dates: start: 2004, end: 2012
  9. ENALAPRIL [Concomitant]
     Active Substance: ENALAPRIL
     Indication: BLOOD PRESSURE ABNORMAL
     Dosage: UNK
  10. FINASTERIDE. [Concomitant]
     Active Substance: FINASTERIDE
     Indication: URINARY TRACT DISORDER
     Dosage: UNK

REACTIONS (3)
  - Depression [Unknown]
  - Malignant melanoma [Unknown]
  - Anxiety [Unknown]

NARRATIVE: CASE EVENT DATE: 20120214
